FAERS Safety Report 12964093 (Version 13)
Quarter: 2017Q3

REPORT INFORMATION
  Report Type: Report from Study
  Country: FR (occurrence: FR)
  Receive Date: 20161122
  Receipt Date: 20170821
  Transmission Date: 20171127
  Serious: Yes (Hospitalization, Other)
  Sender: FDA-Public Use
  Company Number: FR-CELGENEUS-FRA-2016112123

PATIENT
  Age: 61 Year
  Sex: Female
  Weight: 56.8 kg

DRUGS (34)
  1. TIORFAN [Concomitant]
     Active Substance: RACECADOTRIL
     Indication: ANTIDIARRHOEAL SUPPORTIVE CARE
     Dosage: 100MG
     Route: 065
  2. COVERSYL [Concomitant]
     Active Substance: PERINDOPRIL
     Indication: HYPERTENSION
     Dosage: UNKNOWN
     Route: 065
     Dates: end: 20161022
  3. BLOOD, WHOLE [Concomitant]
     Active Substance: WHOLE BLOOD
     Dosage: UNKNOWN
     Route: 065
     Dates: start: 20161109, end: 20161109
  4. AMPHOTERICIN B. [Concomitant]
     Active Substance: AMPHOTERICIN B
     Indication: FUNGAL INFECTION
     Dosage: UNKNOWN
     Route: 065
     Dates: start: 20161115
  5. MIDAZOLAM [Concomitant]
     Active Substance: MIDAZOLAM HYDROCHLORIDE
     Indication: SEDATION
     Dosage: UNKNOWN
     Route: 065
     Dates: start: 20161120, end: 20161120
  6. KARDEGIC [Concomitant]
     Active Substance: ASPIRIN LYSINE
     Indication: CEREBROVASCULAR ACCIDENT PROPHYLAXIS
     Dosage: 160MG
     Route: 065
  7. BLOOD, WHOLE [Concomitant]
     Active Substance: WHOLE BLOOD
     Dosage: UNKNOWN
     Route: 065
     Dates: start: 20161107, end: 20161107
  8. PHLOROGLUCINOL [Concomitant]
     Active Substance: PHLOROGLUCINOL
     Indication: GASTROINTESTINAL PAIN
     Dosage: 40MG
     Route: 065
     Dates: start: 20161103
  9. ALPRAZOLAM. [Concomitant]
     Active Substance: ALPRAZOLAM
     Indication: ANXIOLYTIC THERAPY
     Dosage: UNKNOWN
     Route: 065
     Dates: start: 20161109
  10. FLUCONAZOLE. [Concomitant]
     Active Substance: FLUCONAZOLE
     Indication: ANTIFUNGAL TREATMENT
     Dosage: UNKNOWN
     Route: 065
     Dates: start: 20161117
  11. TIORFAN [Concomitant]
     Active Substance: RACECADOTRIL
     Indication: DIARRHOEA
  12. SPASFON [Concomitant]
     Active Substance: PHLOROGLUCINOL\1,3,5-TRIMETHOXYBENZENE
     Indication: PROPHYLAXIS
     Dosage: UNKNOWN
     Route: 065
     Dates: start: 20161031
  13. ABRAXANE [Suspect]
     Active Substance: PACLITAXEL
     Indication: NON-SMALL CELL LUNG CANCER STAGE IV
     Dosage: 100MG/M2
     Route: 041
     Dates: start: 20161025, end: 20161104
  14. NEFOPAM [Concomitant]
     Active Substance: NEFOPAM
     Indication: PAIN
     Dosage: UNKNOWN
     Route: 065
     Dates: start: 20161023
  15. MIANSERIN [Concomitant]
     Active Substance: MIANSERIN
     Indication: PRODUCT USED FOR UNKNOWN INDICATION
     Dosage: UNKNOWN
     Route: 065
  16. PARACETAMOL [Concomitant]
     Active Substance: ACETAMINOPHEN
     Indication: PAIN
     Dosage: 1G/100ML
     Route: 065
     Dates: start: 20161103
  17. SMOFKABIVEN [Concomitant]
     Active Substance: AMINO ACIDS\DEXTROSE\ELECTROLYTES NOS\SOYBEAN OIL
     Indication: WEIGHT DECREASED
     Dosage: UNKNOWN
     Route: 065
     Dates: start: 20161107
  18. LASILIX [Concomitant]
     Active Substance: FUROSEMIDE
     Indication: PAIN
     Dosage: UNKNOWN
     Route: 065
     Dates: start: 20161108
  19. HYDROXYZINE [Concomitant]
     Active Substance: HYDROXYZINE HYDROCHLORIDE
     Indication: ANXIOLYTIC THERAPY
     Dosage: 25MG
     Route: 065
     Dates: start: 20161025
  20. BLOOD, WHOLE [Concomitant]
     Active Substance: WHOLE BLOOD
     Dosage: UNKNOWN
     Route: 065
     Dates: start: 20161103, end: 20161103
  21. FUROSEMIDE. [Concomitant]
     Active Substance: FUROSEMIDE
     Dosage: UNKNOWN
     Route: 065
     Dates: start: 20161119, end: 20161121
  22. METOCLOPRAMIDE. [Concomitant]
     Active Substance: METOCLOPRAMIDE
     Indication: NAUSEA
     Dosage: 10MG/2ML
     Route: 065
     Dates: start: 20161023
  23. BLOOD, WHOLE [Concomitant]
     Active Substance: WHOLE BLOOD
     Indication: BLOOD DISORDER
     Dosage: UNKNOWN
     Route: 065
     Dates: start: 20161031, end: 20161031
  24. FUROSEMIDE. [Concomitant]
     Active Substance: FUROSEMIDE
     Indication: OEDEMA
     Dosage: UNKNOWN
     Route: 065
     Dates: start: 20161108, end: 20161114
  25. OXYCODONE [Concomitant]
     Active Substance: OXYCODONE
     Indication: PAIN
     Dosage: UNKNOWN
     Route: 065
  26. CARBOPLATIN. [Suspect]
     Active Substance: CARBOPLATIN
     Indication: NON-SMALL CELL LUNG CANCER STAGE IV
     Dosage: AUC=6?760 MG
     Route: 041
     Dates: start: 20161025, end: 20161104
  27. PIPERACILLIN/TAZOBACTAM [Concomitant]
     Active Substance: PIPERACILLIN SODIUM\TAZOBACTAM SODIUM
     Indication: INFECTION PROPHYLAXIS
     Dosage: 4MG
     Route: 065
     Dates: start: 20161103
  28. DIFLUCAN [Concomitant]
     Active Substance: FLUCONAZOLE
     Indication: ANTIFUNGAL TREATMENT
     Dosage: UNKNOWN
     Route: 065
     Dates: start: 20161115, end: 20161117
  29. PANTOPRAZOLE [Concomitant]
     Active Substance: PANTOPRAZOLE
     Indication: NAUSEA
     Dosage: UNKNOWN
     Route: 065
     Dates: start: 20161115
  30. SODIUM BICARBONATE. [Concomitant]
     Active Substance: SODIUM BICARBONATE
     Indication: NAUSEA
     Dosage: UNKNOWN
     Route: 065
     Dates: start: 20161115
  31. ATEZOLIZUMAB. [Suspect]
     Active Substance: ATEZOLIZUMAB
     Indication: NON-SMALL CELL LUNG CANCER STAGE IV
     Dosage: 1200MG
     Route: 041
     Dates: start: 20161025
  32. OXYNORM [Concomitant]
     Active Substance: OXYCODONE HYDROCHLORIDE
     Indication: PAIN
     Dosage: 5MG
     Route: 065
     Dates: start: 20161023
  33. PERINDOPRIL ERBUMINE. [Concomitant]
     Active Substance: PERINDOPRIL ERBUMINE
     Indication: HYPERTENSION
     Dosage: 2MG
     Route: 065
     Dates: start: 20161023
  34. LASILIX [Concomitant]
     Active Substance: FUROSEMIDE
     Indication: OEDEMA

REACTIONS (12)
  - Hypoalbuminaemia [Recovered/Resolved]
  - Septic shock [Not Recovered/Not Resolved]
  - Febrile neutropenia [Recovered/Resolved]
  - Hyperglycaemia [Recovered/Resolved]
  - Thrombocytopenia [Recovered/Resolved]
  - Pleural effusion [Recovered/Resolved]
  - Diarrhoea [Recovered/Resolved]
  - Blood alkaline phosphatase increased [Not Recovered/Not Resolved]
  - Colitis [Recovered/Resolved]
  - Lymphocyte count decreased [Recovered/Resolved]
  - Neutropenia [Recovered/Resolved]
  - Hypokalaemia [Recovered/Resolved]

NARRATIVE: CASE EVENT DATE: 20161025
